FAERS Safety Report 9156197 (Version 1)
Quarter: 2013Q1

REPORT INFORMATION
  Report Type: Spontaneous
  Country: US (occurrence: US)
  Receive Date: 20130123
  Receipt Date: 20130123
  Transmission Date: 20140127
  Serious: No
  Sender: FDA-Public Use
  Company Number: US-BRACCO-007956

PATIENT
  Age: 44 Year
  Sex: Female
  Weight: 86 kg

DRUGS (3)
  1. MULTIHANCE [Suspect]
     Indication: NUCLEAR MAGNETIC RESONANCE IMAGING
     Route: 042
     Dates: start: 20120427, end: 20120427
  2. MULTIHANCE [Suspect]
     Indication: EYELID FUNCTION DISORDER
     Route: 042
     Dates: start: 20120427, end: 20120427
  3. MULTIHANCE [Suspect]
     Indication: EYE PAIN
     Route: 042
     Dates: start: 20120427, end: 20120427

REACTIONS (3)
  - Oropharyngeal discomfort [Recovered/Resolved]
  - Chest discomfort [Recovered/Resolved]
  - Dysphagia [Recovered/Resolved]
